FAERS Safety Report 17766083 (Version 1)
Quarter: 2020Q2

REPORT INFORMATION
  Report Type: Spontaneous
  Country: US (occurrence: US)
  Receive Date: 20200511
  Receipt Date: 20200511
  Transmission Date: 20200714
  Serious: Yes (Hospitalization)
  Sender: FDA-Public Use
  Company Number: US-HORIZON-PRE-0145-2020

PATIENT
  Age: 72 Year
  Sex: Male

DRUGS (2)
  1. PREDNISONE. [Suspect]
     Active Substance: PREDNISONE
     Indication: ARTHRITIS REACTIVE
     Dosage: 5MG BY MOUTH DAILY (INCREASED AND TAPERED; VARIED FROM 1MG TO 20MG)
     Route: 048
  2. METHOTREXATE. [Suspect]
     Active Substance: METHOTREXATE
     Indication: ARTHRITIS REACTIVE

REACTIONS (2)
  - Immune reconstitution inflammatory syndrome [Unknown]
  - Mycobacterium chelonae infection [Unknown]
